FAERS Safety Report 9161691 (Version 2)
Quarter: 2013Q1

REPORT INFORMATION
  Report Type: Spontaneous
  Country: US (occurrence: US)
  Receive Date: 20130314
  Receipt Date: 20130318
  Transmission Date: 20140127
  Serious: No
  Sender: FDA-Public Use
  Company Number: US-009507513-1303USA005279

PATIENT
  Age: 63 Year
  Sex: Female

DRUGS (1)
  1. MAXALT [Suspect]
     Indication: MIGRAINE
     Dosage: 10 MG AS AND WHEN REQUIRED
     Route: 048
     Dates: start: 20130215, end: 20130304

REACTIONS (1)
  - Drug effect incomplete [Not Recovered/Not Resolved]
